FAERS Safety Report 7478151-7 (Version None)
Quarter: 2011Q2

REPORT INFORMATION
  Report Type: 
  Country: None (occurrence: None)
  Receive Date: 20110511
  Receipt Date: 20110511
  Transmission Date: 20111010
  Serious: Yes (Hospitalization, Other)
  Sender: FDA-Public Use
  Company Number: None

PATIENT
  Age: 65 Year
  Weight: 65 kg

DRUGS (1)
  1. SUBOXONE [Suspect]

REACTIONS (5)
  - TRANSAMINASES INCREASED [None]
  - BLOOD BILIRUBIN INCREASED [None]
  - HEPATITIS [None]
  - BILIARY DILATATION [None]
  - PANCREATITIS [None]
